FAERS Safety Report 6198176-1 (Version None)
Quarter: 2009Q2

REPORT INFORMATION
  Report Type: 
  Country: None (occurrence: None)
  Receive Date: 20090521
  Receipt Date: 20090519
  Transmission Date: 20091009
  Serious: Yes (Hospitalization)
  Sender: FDA-Public Use
  Company Number: HK-ROCHE-633609

PATIENT
  Age: 54 Year
  Sex: Male

DRUGS (3)
  1. PEGASYS [Suspect]
     Route: 058
     Dates: start: 20090313
  2. RIBAVIRIN [Suspect]
     Route: 048
     Dates: start: 20090313
  3. RIBAVIRIN [Suspect]
     Route: 048
     Dates: start: 20090512

REACTIONS (1)
  - ANAEMIA [None]
